FAERS Safety Report 4386425-1 (Version None)
Quarter: 2004Q2

REPORT INFORMATION
  Report Type: 
  Country: None (occurrence: None)
  Receive Date: 20040623
  Receipt Date: 20040609
  Transmission Date: 20050107
  Serious: Yes (Hospitalization)
  Sender: FDA-Public Use
  Company Number: JP_040603364

PATIENT
  Age: 66 Year
  Sex: Male
  Weight: 79 kg

DRUGS (9)
  1. HUMALOG [Suspect]
     Indication: DIABETES MELLITUS NON-INSULIN-DEPENDENT
     Dosage: 22 U DAY
     Dates: start: 20030926
  2. ACTRAPID INNOLET (INSULIN) [Concomitant]
  3. METHYCOBAL (MECOBALAMIN) [Concomitant]
  4. ASPIRIN [Concomitant]
  5. LIPITOR [Concomitant]
  6. HERBESSOR R (DILTIAZEM HYDROCHLORIDE) [Concomitant]
  7. ENALAPRIL MALEATE [Concomitant]
  8. DIOVAN [Concomitant]
  9. GLUCOBAY [Concomitant]

REACTIONS (1)
  - CHEST DISCOMFORT [None]
